FAERS Safety Report 21070997 (Version 1)
Quarter: 2022Q3

REPORT INFORMATION
  Report Type: Spontaneous
  Country: US (occurrence: None)
  Receive Date: 20220712
  Receipt Date: 20220712
  Transmission Date: 20221027
  Serious: No
  Sender: FDA-Public Use
  Company Number: None

PATIENT
  Age: 67 Year
  Sex: Male
  Weight: 91.7 kg

DRUGS (1)
  1. RADIUM RA-223 DICHLORIDE [Suspect]
     Active Substance: RADIUM RA-223 DICHLORIDE

REACTIONS (5)
  - Nasopharyngitis [None]
  - Neutropenia [None]
  - Paranasal sinus discomfort [None]
  - Lymphocyte count decreased [None]
  - Therapy interrupted [None]

NARRATIVE: CASE EVENT DATE: 20220630
